FAERS Safety Report 8882356 (Version 1)
Quarter: 2012Q4

REPORT INFORMATION
  Report Type: 
  Country: SE (occurrence: SE)
  Receive Date: 20121102
  Receipt Date: 20121102
  Transmission Date: 20130627
  Serious: Yes (Hospitalization, Other)
  Sender: FDA-Public Use
  Company Number: PHHO2010SE18283

PATIENT
  Age: 78 Year
  Sex: Male
  Weight: 84 kg

DRUGS (13)
  1. BLINDED ALISKIREN [Suspect]
     Indication: CARDIAC FAILURE
     Dosage: Code not broken
     Route: 048
     Dates: start: 20100409
  2. BLINDED ENALAPRIL [Suspect]
     Indication: CARDIAC FAILURE
     Dosage: Code not broken
     Route: 048
     Dates: start: 20100409
  3. BLINDED NO TREATMENT RECEIVED [Suspect]
     Indication: CARDIAC FAILURE
     Dosage: Code not broken
     Route: 048
     Dates: start: 20100409
  4. FUROSEMID [Concomitant]
     Indication: CARDIAC FAILURE
     Dosage: UNK
  5. BETA BLOCKING AGENTS [Concomitant]
  6. SIMVASTATIN [Concomitant]
     Indication: ARTERIOSCLEROSIS
  7. SIMVASTATIN [Concomitant]
     Indication: CARDIAC FAILURE
  8. WARFARIN [Concomitant]
     Indication: ATRIAL FIBRILLATION
  9. ALDOSTERONE ANTAGONISTS [Concomitant]
  10. SPIRONOLACTONE [Concomitant]
     Indication: CARDIAC FAILURE
     Dosage: UNK
  11. DIGOXIN [Concomitant]
     Indication: CARDIAC FAILURE
  12. FURIX [Concomitant]
     Indication: CARDIAC FAILURE
     Dosage: UNK
  13. ENALAPRIL [Concomitant]
     Indication: CARDIAC FAILURE
     Dosage: UNK

REACTIONS (6)
  - Musculoskeletal chest pain [Recovered/Resolved]
  - Fall [Recovered/Resolved]
  - Rib fracture [Recovered/Resolved]
  - Vascular dementia [Not Recovered/Not Resolved]
  - Chest pain [Recovered/Resolved]
  - Concomitant disease progression [Not Recovered/Not Resolved]
